FAERS Safety Report 23580396 (Version 2)
Quarter: 2024Q1

REPORT INFORMATION
  Report Type: Spontaneous
  Country: US (occurrence: US)
  Receive Date: 20240229
  Receipt Date: 20240327
  Transmission Date: 20240410
  Serious: No
  Sender: FDA-Public Use
  Company Number: US-JNJFOC-20240283265

PATIENT
  Age: 76 Year
  Sex: Male

DRUGS (4)
  1. ERLEADA [Suspect]
     Active Substance: APALUTAMIDE
     Indication: Prostate cancer
     Route: 048
     Dates: start: 202311, end: 20240221
  2. LOSARTAN [Concomitant]
     Active Substance: LOSARTAN
     Indication: Blood pressure measurement
     Dates: start: 20230908
  3. HYDROCHLOROTHIAZIDE [Concomitant]
     Active Substance: HYDROCHLOROTHIAZIDE
  4. ORGOVYX [Concomitant]
     Active Substance: RELUGOLIX
     Indication: Prostate cancer
     Dates: start: 202309

REACTIONS (3)
  - Hypersensitivity [Recovering/Resolving]
  - Rash [Unknown]
  - Oral mucosal blistering [Unknown]
